FAERS Safety Report 10224761 (Version 1)
Quarter: 2014Q2

REPORT INFORMATION
  Report Type: Spontaneous
  Country: AR (occurrence: AR)
  Receive Date: 20140609
  Receipt Date: 20140609
  Transmission Date: 20141212
  Serious: Yes (Death, Life-Threatening, Hospitalization, Other)
  Sender: FDA-Public Use
  Company Number: AR-GLAXOSMITHKLINE-A1076306A

PATIENT
  Age: 62 Year
  Sex: Male

DRUGS (7)
  1. ARZERRA [Suspect]
     Indication: CHRONIC LYMPHOCYTIC LEUKAEMIA
     Route: 042
     Dates: start: 20130610, end: 20130815
  2. RITUXIMAB [Suspect]
     Indication: CHRONIC LYMPHOCYTIC LEUKAEMIA
     Route: 065
     Dates: start: 2011, end: 201210
  3. FLUDARABINE [Suspect]
     Indication: CHRONIC LYMPHOCYTIC LEUKAEMIA
     Route: 065
     Dates: start: 2011, end: 2011
  4. CYCLOPHOSPHAMIDE [Suspect]
     Indication: CHRONIC LYMPHOCYTIC LEUKAEMIA
     Route: 065
     Dates: start: 2011, end: 2011
  5. BENDAMUSTINE [Suspect]
     Indication: CHRONIC LYMPHOCYTIC LEUKAEMIA
     Route: 065
     Dates: start: 201206, end: 201210
  6. LENALIDOMIDE [Suspect]
     Indication: CHRONIC LYMPHOCYTIC LEUKAEMIA
     Route: 065
     Dates: start: 20130116, end: 2013
  7. SOLUMEDROL [Concomitant]
     Route: 065

REACTIONS (13)
  - Pancytopenia [Fatal]
  - Herpes ophthalmic [Fatal]
  - Leukopenia [Fatal]
  - Disease progression [Fatal]
  - Pneumonia [Fatal]
  - Leukaemia recurrent [Fatal]
  - Disease complication [Fatal]
  - Pleural effusion [Fatal]
  - Multiple-drug resistance [Fatal]
  - Lymphadenopathy mediastinal [Fatal]
  - Infection [Fatal]
  - Drug ineffective [Unknown]
  - Thrombocytopenia [Fatal]
